FAERS Safety Report 17821108 (Version 1)
Quarter: 2020Q2

REPORT INFORMATION
  Report Type: Spontaneous
  Country: CH (occurrence: CH)
  Receive Date: 20200525
  Receipt Date: 20200525
  Transmission Date: 20200714
  Serious: Yes (Hospitalization)
  Sender: FDA-Public Use
  Company Number: CH-NOVOPROD-729021

PATIENT
  Sex: Female

DRUGS (1)
  1. SAXENDA [Suspect]
     Active Substance: LIRAGLUTIDE
     Indication: PRODUCT USED FOR UNKNOWN INDICATION
     Dosage: 1.6 MG
     Route: 065

REACTIONS (5)
  - Depression [Recovered/Resolved]
  - Inappropriate schedule of product administration [Unknown]
  - Gait inability [Recovered/Resolved]
  - Thyroiditis [Recovered/Resolved]
  - Arthropathy [Recovered/Resolved]
